FAERS Safety Report 6719554-5 (Version None)
Quarter: 2010Q2

REPORT INFORMATION
  Report Type: 
  Country: None (occurrence: None)
  Receive Date: 20100507
  Receipt Date: 20100429
  Transmission Date: 20101027
  Serious: Yes (Hospitalization)
  Sender: FDA-Public Use
  Company Number: 2010SP024383

PATIENT
  Age: 16 Year
  Sex: Female

DRUGS (1)
  1. DESOGESTREL AND ETHINYL ESTRADIOL [Suspect]
     Indication: ACNE
     Dosage: 1 IU; QD; PO
     Route: 048
     Dates: start: 20100420, end: 20100425

REACTIONS (7)
  - ABDOMINAL PAIN UPPER [None]
  - LOSS OF CONSCIOUSNESS [None]
  - NAUSEA [None]
  - SYNCOPE [None]
  - VERTIGO [None]
  - VISION BLURRED [None]
  - VOMITING [None]
